FAERS Safety Report 24047094 (Version 1)
Quarter: 2024Q3

REPORT INFORMATION
  Report Type: Spontaneous
  Country: CN (occurrence: CN)
  Receive Date: 20240703
  Receipt Date: 20240703
  Transmission Date: 20241017
  Serious: Yes (Life-Threatening)
  Sender: ALCON
  Company Number: CN-ALCON LABORATORIES-ALC2024CN003172

PATIENT
  Age: 49 Year
  Sex: Male
  Weight: 61 kg

DRUGS (2)
  1. FLUORESCITE [Suspect]
     Active Substance: FLUORESCEIN SODIUM
     Indication: Fundoscopy
     Dosage: 3 ML, ONCE/SINGLE
     Route: 042
     Dates: start: 20240612, end: 20240612
  2. INDOCYANINE GREEN [Suspect]
     Active Substance: INDOCYANINE GREEN
     Indication: Fundoscopy
     Dosage: 2 ML, ONCE/SINGLE
     Route: 042
     Dates: start: 20240612, end: 20240612

REACTIONS (3)
  - Quadriplegia [Recovering/Resolving]
  - Dyspnoea [Recovering/Resolving]
  - Hypotension [Recovering/Resolving]

NARRATIVE: CASE EVENT DATE: 20240612
